FAERS Safety Report 4699234-0 (Version None)
Quarter: 2005Q2

REPORT INFORMATION
  Report Type: 
  Country: None (occurrence: None)
  Receive Date: 20050622
  Receipt Date: 20050609
  Transmission Date: 20051028
  Serious: Yes (Disabling)
  Sender: FDA-Public Use
  Company Number: 2005087288

PATIENT
  Age: 63 Year
  Sex: Male
  Weight: 89 kg

DRUGS (3)
  1. SILDENAFIL CITRATE [Suspect]
     Indication: ERECTILE DYSFUNCTION
     Dosage: (50 MG), ORAL
     Route: 048
     Dates: start: 20000505, end: 20050531
  2. DOMPERIDONE (DOMPERIDONE) [Concomitant]
  3. LATANOPROST [Concomitant]

REACTIONS (1)
  - RETINAL ARTERY OCCLUSION [None]
